FAERS Safety Report 22708232 (Version 13)
Quarter: 2024Q4

REPORT INFORMATION
  Report Type: Spontaneous
  Country: CA (occurrence: CA)
  Receive Date: 20230715
  Receipt Date: 20241107
  Transmission Date: 20250115
  Serious: Yes (Other)
  Sender: CELLTRION
  Company Number: CA-CELLTRION INC.-2023CA012337

PATIENT

DRUGS (16)
  1. INFLECTRA [Suspect]
     Active Substance: INFLIXIMAB-DYYB
     Indication: Crohn^s disease
     Dosage: 500 MG, EVERY 8 WEEKS (INDUCTION WEEK 0,2,6 THEN MAINTENANCE EVERY 8 WEEKS)
     Route: 042
     Dates: start: 20230525
  2. INFLECTRA [Suspect]
     Active Substance: INFLIXIMAB-DYYB
     Dosage: 500 MG, WEEK 2 INDUCTION DOSE
     Route: 042
     Dates: start: 20230608
  3. INFLECTRA [Suspect]
     Active Substance: INFLIXIMAB-DYYB
     Dosage: 500 MG, AFTER 4 WEEKS
     Route: 042
     Dates: start: 20230707
  4. INFLECTRA [Suspect]
     Active Substance: INFLIXIMAB-DYYB
     Dosage: 500 MG, EVERY 8 WEEKS
     Route: 042
     Dates: start: 20230901
  5. INFLECTRA [Suspect]
     Active Substance: INFLIXIMAB-DYYB
     Dosage: 500 MG, EVERY 8 WEEKS
     Route: 042
     Dates: start: 20231027
  6. INFLECTRA [Suspect]
     Active Substance: INFLIXIMAB-DYYB
     Dosage: 500 MG, EVERY 8 WEEKS
     Route: 042
     Dates: start: 20231222
  7. INFLECTRA [Suspect]
     Active Substance: INFLIXIMAB-DYYB
     Dosage: 500 MG, INDUCTION WEEK 0,2,6 THEN MAINTENANCE EVERY 8 WEEKS
     Route: 042
     Dates: start: 20240216
  8. INFLECTRA [Suspect]
     Active Substance: INFLIXIMAB-DYYB
     Dosage: 500 MG, INDUCTION WEEK 0,2,6 THEN MAINTENANCE EVERY 8 WEEKS
     Route: 042
     Dates: start: 20240412
  9. INFLECTRA [Suspect]
     Active Substance: INFLIXIMAB-DYYB
     Dosage: 500 MG, AFTER 7 WEEKS AND 5 DAYS
     Route: 042
     Dates: start: 20240605
  10. INFLECTRA [Suspect]
     Active Substance: INFLIXIMAB-DYYB
     Dosage: 500 MG, AFTER 8 WEEKS (PRESCRIBEDINDUCTION WEEK 0 ,2, 6 THEN MAINTENANCE EVERY 8 WEEKS   )
     Route: 042
     Dates: start: 20240802
  11. INFLECTRA [Suspect]
     Active Substance: INFLIXIMAB-DYYB
     Dosage: 500 MG, AFTER 8 WEEKS (PRESCRIBED EVERY 4 WEEKS)
     Route: 042
     Dates: start: 20240927
  12. INFLECTRA [Suspect]
     Active Substance: INFLIXIMAB-DYYB
     Dosage: 500 MG, 4 WEEKS(500MG, EVERY 4 WEEKS)
     Route: 042
     Dates: start: 20241029
  13. CEPHALEXIN [Concomitant]
     Active Substance: CEPHALEXIN
     Dosage: UNK, FOR 7 DAYS
  14. LIPIDIL [Concomitant]
     Active Substance: FENOFIBRATE
     Dosage: 1 DF
  15. PREDNISONE [Concomitant]
     Active Substance: PREDNISONE
     Dosage: 20 MG (1DF) (STARTED IN HOSPITAL)
  16. PREDNISONE [Concomitant]
     Active Substance: PREDNISONE
     Dosage: 40 MG, (TAPERING)
     Route: 048

REACTIONS (6)
  - Condition aggravated [Not Recovered/Not Resolved]
  - Ileostomy [Unknown]
  - Enterocutaneous fistula [Recovered/Resolved]
  - Wound infection [Recovering/Resolving]
  - Fistula [Recovered/Resolved]
  - Arthralgia [Not Recovered/Not Resolved]

NARRATIVE: CASE EVENT DATE: 20230101
